FAERS Safety Report 19359383 (Version 6)
Quarter: 2022Q4

REPORT INFORMATION
  Report Type: Spontaneous
  Country: US (occurrence: US)
  Receive Date: 20210601
  Receipt Date: 20221013
  Transmission Date: 20230113
  Serious: Yes (Hospitalization, Other)
  Sender: FDA-Public Use
  Company Number: US-BIOGEN-2021BI01010615

PATIENT
  Sex: Male

DRUGS (2)
  1. TYSABRI [Suspect]
     Active Substance: NATALIZUMAB
     Indication: Multiple sclerosis
     Dosage: INFUSED FOR OVER 1 HOUR
     Route: 050
     Dates: start: 20170405, end: 20210219
  2. TYSABRI [Suspect]
     Active Substance: NATALIZUMAB
     Route: 050
     Dates: start: 20170405, end: 20210219

REACTIONS (6)
  - Haematoma [Unknown]
  - Cerebrovascular accident [Not Recovered/Not Resolved]
  - Drug reaction with eosinophilia and systemic symptoms [Unknown]
  - Posterior reversible encephalopathy syndrome [Not Recovered/Not Resolved]
  - Incision site haemorrhage [Unknown]
  - Accident [Recovered/Resolved]

NARRATIVE: CASE EVENT DATE: 20210101
